FAERS Safety Report 13385510 (Version 1)
Quarter: 2017Q1

REPORT INFORMATION
  Report Type: Spontaneous
  Country: US (occurrence: US)
  Receive Date: 20170330
  Receipt Date: 20170330
  Transmission Date: 20170429
  Serious: Yes (Death)
  Sender: FDA-Public Use
  Company Number: None

PATIENT
  Age: 55 Year
  Sex: Male

DRUGS (6)
  1. CODEINE [Concomitant]
     Active Substance: CODEINE
  2. FUROSEMIDE. [Concomitant]
     Active Substance: FUROSEMIDE
  3. GABAPENTIN. [Concomitant]
     Active Substance: GABAPENTIN
  4. ALBUTEROL. [Concomitant]
     Active Substance: ALBUTEROL
  5. HCTZ [Concomitant]
     Active Substance: HYDROCHLOROTHIAZIDE
  6. ALECENSA [Suspect]
     Active Substance: ALECTINIB HYDROCHLORIDE
     Indication: NON-SMALL CELL LUNG CANCER
     Route: 048
     Dates: start: 20170123, end: 20170330

REACTIONS (1)
  - Death [None]

NARRATIVE: CASE EVENT DATE: 20170330
